FAERS Safety Report 5031090-3 (Version None)
Quarter: 2006Q2

REPORT INFORMATION
  Report Type: 
  Country: None (occurrence: None)
  Receive Date: 20060615
  Receipt Date: 20060605
  Transmission Date: 20061013
  Serious: Yes (Death, Other)
  Sender: FDA-Public Use
  Company Number: 2006-BP-06407RO

PATIENT
  Age: 33 Year
  Sex: Female

DRUGS (11)
  1. AZATHIOPRINE [Suspect]
     Indication: PROPHYLAXIS AGAINST TRANSPLANT REJECTION
     Dosage: 50 MG/DAY
  2. CYCLOSPORINE [Suspect]
     Indication: IMMUNOSUPPRESSION
  3. AMINOGLYCOSIDES (AMINOGLYCOSIDE ANTIBACTERIALS) [Suspect]
     Indication: ASPERGILLOSIS
  4. AMINOGLYCOSIDES (AMINOGLYCOSIDE ANTIBACTERIALS) [Suspect]
     Indication: PSEUDOMONAS INFECTION
  5. AMPHOTERICIN B [Suspect]
     Indication: ASPERGILLOSIS
  6. AMPHOTERICIN B [Suspect]
     Indication: PSEUDOMONAS INFECTION
  7. SIROLIMUS (SIROLIMUS) [Suspect]
     Indication: IMMUNOSUPPRESSION
  8. METHOTREXATE [Suspect]
     Indication: IMMUNOSUPPRESSION
  9. MYCOPHENOLATE MOFETIL [Suspect]
     Indication: IMMUNOSUPPRESSION
  10. PREDNISOLONE [Suspect]
     Indication: IMMUNOSUPPRESSION
  11. RITUXIMAB (RITUXIMAB) [Concomitant]

REACTIONS (12)
  - ASPERGILLOSIS [None]
  - BRONCHOSTENOSIS [None]
  - DISEASE RECURRENCE [None]
  - HAEMODIALYSIS [None]
  - LUNG TRANSPLANT REJECTION [None]
  - LYMPHOPROLIFERATIVE DISORDER [None]
  - MYELODYSPLASTIC SYNDROME [None]
  - PANCYTOPENIA [None]
  - PNEUMONIA [None]
  - PSEUDOMONAS INFECTION [None]
  - RENAL FAILURE CHRONIC [None]
  - SKIN LESION [None]
